FAERS Safety Report 5044423-9 (Version None)
Quarter: 2006Q3

REPORT INFORMATION
  Report Type: 
  Country: None (occurrence: None)
  Receive Date: 20060706
  Receipt Date: 20060607
  Transmission Date: 20061208
  Serious: Yes (Hospitalization)
  Sender: FDA-Public Use
  Company Number: JP-AVENTIS-200611795JP

PATIENT
  Age: 72 Year
  Sex: Male

DRUGS (7)
  1. AMARYL [Suspect]
     Indication: DIABETES MELLITUS NON-INSULIN-DEPENDENT
     Route: 048
  2. CANDESARTAN CILEXETIL [Concomitant]
     Indication: BLOOD PRESSURE MANAGEMENT
     Route: 048
  3. AMLODIPINE BESYLATE [Concomitant]
     Indication: BLOOD PRESSURE MANAGEMENT
     Route: 048
  4. ASPIRIN [Concomitant]
     Indication: THROMBOSIS PROPHYLAXIS
     Route: 048
  5. LOXOPROFEN SODIUM [Concomitant]
     Indication: PAIN
     Route: 048
  6. EPERISONE HYDROCHLORIDE [Concomitant]
     Indication: HYPOTONIA
     Route: 048
  7. OMEPRAZOLE [Concomitant]
     Route: 048

REACTIONS (15)
  - ANOREXIA [None]
  - BLOOD ALBUMIN DECREASED [None]
  - BLOOD ALKALINE PHOSPHATASE INCREASED [None]
  - BLOOD CREATININE INCREASED [None]
  - BLOOD LACTATE DEHYDROGENASE INCREASED [None]
  - BLOOD UREA INCREASED [None]
  - BODY TEMPERATURE INCREASED [None]
  - DEPRESSED LEVEL OF CONSCIOUSNESS [None]
  - GLYCOSYLATED HAEMOGLOBIN INCREASED [None]
  - HAEMATOCRIT DECREASED [None]
  - HAEMOGLOBIN DECREASED [None]
  - HYPOGLYCAEMIA [None]
  - PROTEIN TOTAL DECREASED [None]
  - RED BLOOD CELL COUNT DECREASED [None]
  - RESPIRATORY RATE INCREASED [None]
